FAERS Safety Report 24867191 (Version 4)
Quarter: 2025Q2

REPORT INFORMATION
  Report Type: Report from Study
  Country: US (occurrence: US)
  Receive Date: 20250121
  Receipt Date: 20250507
  Transmission Date: 20250717
  Serious: Yes (Other)
  Sender: NOVARTIS
  Company Number: US-002147023-NVSC2025US008101

PATIENT
  Sex: Male

DRUGS (1)
  1. KESIMPTA [Suspect]
     Active Substance: OFATUMUMAB
     Indication: Multiple sclerosis
     Route: 065

REACTIONS (9)
  - Skin cancer [Unknown]
  - Macular oedema [Unknown]
  - Chest wall mass [Unknown]
  - Limb injury [Unknown]
  - Pain [Unknown]
  - Hepatic enzyme increased [Unknown]
  - Gait inability [Unknown]
  - Injection site discharge [Unknown]
  - Drug ineffective [Unknown]
